FAERS Safety Report 8206802-8 (Version None)
Quarter: 2012Q1

REPORT INFORMATION
  Report Type: 
  Country: None (occurrence: None)
  Receive Date: 20120308
  Receipt Date: 20120229
  Transmission Date: 20120608
  Serious: Yes (Other)
  Sender: FDA-Public Use
  Company Number: 2012031443

PATIENT
  Age: 54 Year
  Sex: Male
  Weight: 95.2554 kg

DRUGS (6)
  1. PAXIL [Concomitant]
  2. BERINERT [Suspect]
     Indication: HEREDITARY ANGIOEDEMA
     Dosage: (2000 UNITS PRN AT A RATE OF 4 ML PER MINUTES INTRAVENOUS (NOT OTHERWISE SPECIFIED))
     Route: 042
  3. ATENOLOL [Concomitant]
  4. PRILOSEC (OPRAZOLE) () [Concomitant]
  5. HYDROCHLOROTHIAZIDE [Concomitant]
  6. SODIUM CHLORIDE 0.9% [Concomitant]

REACTIONS (2)
  - IMPAIRED WORK ABILITY [None]
  - ANGIOEDEMA [None]
